FAERS Safety Report 7496589-9 (Version None)
Quarter: 2011Q2

REPORT INFORMATION
  Report Type: 
  Country: None (occurrence: None)
  Receive Date: 20110520
  Receipt Date: 20110520
  Transmission Date: 20111010
  Serious: Yes (Other)
  Sender: FDA-Public Use
  Company Number: None

PATIENT
  Sex: Male
  Weight: 70.3075 kg

DRUGS (12)
  1. ADVAIR DISKUS 100/50 [Concomitant]
  2. METOPROLOL SUCCINATE [Concomitant]
  3. MAGNESIUM SALT [Concomitant]
  4. SUNITINIB MALATE [Suspect]
     Indication: CENTRAL NERVOUS SYSTEM LESION
     Dosage: 37.5 MG 1X DAY ORAL
     Route: 048
     Dates: start: 20100921, end: 20101018
  5. SUNITINIB MALATE [Suspect]
     Indication: NEOPLASM MALIGNANT
     Dosage: 37.5 MG 1X DAY ORAL
     Route: 048
     Dates: start: 20100921, end: 20101018
  6. VICODIN [Concomitant]
  7. SPIRIVA WITH HANDIHALER [Concomitant]
  8. INSULIN [Concomitant]
  9. KEPPRA [Concomitant]
  10. LISINOPRIL [Concomitant]
  11. LANTUS [Concomitant]
  12. DIGOXIN [Concomitant]

REACTIONS (3)
  - LYMPHOPENIA [None]
  - COUGH [None]
  - TROPONIN INCREASED [None]
